FAERS Safety Report 10872132 (Version 1)
Quarter: 2015Q1

REPORT INFORMATION
  Report Type: Spontaneous
  Country: US (occurrence: US)
  Receive Date: 20150226
  Receipt Date: 20150226
  Transmission Date: 20150721
  Serious: Yes (Other)
  Sender: FDA-Public Use
  Company Number: US-ELI_LILLY_AND_COMPANY-US201502007107

PATIENT
  Sex: Female
  Weight: 45.35 kg

DRUGS (6)
  1. AOV VITAMIN D3 [Concomitant]
     Route: 065
  2. VAGIFEM [Concomitant]
     Active Substance: ESTRADIOL
     Route: 065
  3. MAGNESIUM [Concomitant]
     Active Substance: MAGNESIUM
     Route: 065
  4. EVISTA [Suspect]
     Active Substance: RALOXIFENE HYDROCHLORIDE
     Indication: OSTEOPOROSIS
     Dosage: UNK, UNKNOWN
     Route: 065
  5. CALCIUM [Concomitant]
     Active Substance: CALCIUM
     Route: 065
  6. FLUORID [Concomitant]
     Route: 065

REACTIONS (8)
  - Hearing impaired [Unknown]
  - Headache [Unknown]
  - Weight decreased [Unknown]
  - Premature menopause [Unknown]
  - Acoustic neuroma [Unknown]
  - Drug ineffective [Unknown]
  - Balance disorder [Unknown]
  - Palpitations [Unknown]

NARRATIVE: CASE EVENT DATE: 2007
